FAERS Safety Report 21142826 (Version 1)
Quarter: 2022Q3

REPORT INFORMATION
  Report Type: Spontaneous
  Country: US (occurrence: None)
  Receive Date: 20220728
  Receipt Date: 20220728
  Transmission Date: 20221027
  Serious: Yes (unspecified)
  Sender: FDA-Public Use
  Company Number: None

PATIENT
  Age: 41 Year
  Sex: Female
  Weight: 65.25 kg

DRUGS (8)
  1. MAGNESIUM CITRATE [Suspect]
     Active Substance: MAGNESIUM CITRATE
     Indication: Constipation
     Dates: start: 20220201, end: 20220720
  2. CLONAZEPAM [Concomitant]
     Active Substance: CLONAZEPAM
  3. CLARITIN [Concomitant]
     Active Substance: LORATADINE
  4. Letrizole [Concomitant]
  5. Leness [Concomitant]
  6. ADDERALL XR [Concomitant]
     Active Substance: AMPHETAMINE ASPARTATE\AMPHETAMINE SULFATE\DEXTROAMPHETAMINE SACCHARATE\DEXTROAMPHETAMINE SULFATE
  7. OMEPRAZOLE [Concomitant]
     Active Substance: OMEPRAZOLE
  8. MIRALAX [Concomitant]
     Active Substance: POLYETHYLENE GLYCOL 3350

REACTIONS (9)
  - Abdominal pain [None]
  - Chills [None]
  - Hyperhidrosis [None]
  - Back pain [None]
  - Abdominal distension [None]
  - Abdominal distension [None]
  - Nausea [None]
  - Vomiting [None]
  - Recalled product administered [None]

NARRATIVE: CASE EVENT DATE: 20220201
